FAERS Safety Report 8809462 (Version 1)
Quarter: 2012Q4

REPORT INFORMATION
  Report Type: 
  Country: US (occurrence: US)
  Receive Date: 20120926
  Receipt Date: 20120926
  Transmission Date: 20130627
  Serious: Yes (Death, Other)
  Sender: FDA-Public Use
  Company Number: US-ROCHE-1124924

PATIENT
  Sex: Female

DRUGS (4)
  1. AVASTIN [Suspect]
     Indication: LUNG NEOPLASM MALIGNANT
     Route: 065
     Dates: start: 20051027
  2. AVASTIN [Suspect]
     Indication: METASTASES TO LYMPH NODES
  3. TAXOL [Concomitant]
  4. CARBOPLATIN [Concomitant]

REACTIONS (4)
  - Death [Fatal]
  - Proteinuria [Unknown]
  - Cough [Unknown]
  - Dyspnoea [Unknown]
